FAERS Safety Report 4320396-9 (Version None)
Quarter: 2004Q1

REPORT INFORMATION
  Report Type: 
  Country: None (occurrence: None)
  Receive Date: 20040319
  Receipt Date: 20040319
  Transmission Date: 20041129
  Serious: Yes (Other)
  Sender: FDA-Public Use
  Company Number: None

PATIENT
  Sex: Female
  Weight: 51.8 kg

DRUGS (6)
  1. SIROLIMUS - 1MG WYETH [Suspect]
     Indication: IMMUNOSUPPRESSION
     Dosage: 5 MG P.O. QD
     Route: 048
     Dates: start: 20030801
  2. TACROLIMUS [Concomitant]
  3. BACTRIM [Concomitant]
  4. HUMALOG [Concomitant]
  5. NEXIUM [Concomitant]
  6. SYNTHROID [Concomitant]

REACTIONS (1)
  - NEUTROPENIA [None]
